FAERS Safety Report 4851188-X (Version None)
Quarter: 2005Q4

REPORT INFORMATION
  Report Type: 
  Country: None (occurrence: None)
  Receive Date: 20051212
  Receipt Date: 20051128
  Transmission Date: 20060501
  Serious: Yes (Other)
  Sender: FDA-Public Use
  Company Number: PHBS2005JP17807

PATIENT
  Age: 69 Year
  Sex: Male

DRUGS (1)
  1. VOLTAREN [Suspect]
     Dosage: 25 MG/DAY
     Dates: start: 20030201, end: 20040701

REACTIONS (1)
  - INTERSTITIAL LUNG DISEASE [None]
